FAERS Safety Report 5130846-6 (Version None)
Quarter: 2006Q4

REPORT INFORMATION
  Report Type: 
  Country: None (occurrence: None)
  Receive Date: 20061013
  Receipt Date: 20060501
  Transmission Date: 20070319
  Serious: No
  Sender: FDA-Public Use
  Company Number: S06-USA-01710-01

PATIENT
  Age: 64 Year
  Sex: Female

DRUGS (4)
  1. AEROBID [Suspect]
     Indication: ASTHMA
     Dosage: 2 PUFF BID IH
     Route: 055
  2. ALBUTEROL [Concomitant]
  3. BLOOD PRESSURE MEDICATIONS (NOS) [Concomitant]
  4. VITAMINS [Concomitant]

REACTIONS (1)
  - DYSGEUSIA [None]
